FAERS Safety Report 5488010-7 (Version None)
Quarter: 2007Q4

REPORT INFORMATION
  Report Type: 
  Country: None (occurrence: None)
  Receive Date: 20071012
  Receipt Date: 20071012
  Transmission Date: 20080405
  Serious: Yes (Life-Threatening, Disabling, Other)
  Sender: FDA-Public Use
  Company Number: None

PATIENT
  Age: 57 Year
  Sex: Male
  Weight: 113.3993 kg

DRUGS (1)
  1. ACTOS [Suspect]
     Indication: DIABETES MELLITUS MANAGEMENT
     Dosage: 15 MG 1 DAY PO
     Route: 048
     Dates: start: 20030101, end: 20060801

REACTIONS (4)
  - FATIGUE [None]
  - OEDEMA PERIPHERAL [None]
  - SWELLING [None]
  - WEIGHT INCREASED [None]
